FAERS Safety Report 5309705-1 (Version None)
Quarter: 2007Q2

REPORT INFORMATION
  Report Type: 
  Country: None (occurrence: None)
  Receive Date: 20070427
  Receipt Date: 20060330
  Transmission Date: 20071010
  Serious: No
  Sender: FDA-Public Use
  Company Number: US-GLAXOSMITHKLINE-A0599761A

PATIENT
  Sex: Female

DRUGS (2)
  1. ZOFRAN [Suspect]
     Dosage: 2MG SINGLE DOSE
     Route: 042
     Dates: start: 20060330, end: 20060330
  2. PROPOFOL [Concomitant]

REACTIONS (1)
  - DYSTONIA [None]
